FAERS Safety Report 9415167 (Version 1)
Quarter: 2013Q3

REPORT INFORMATION
  Report Type: Spontaneous
  Country: IT (occurrence: IT)
  Receive Date: 20130723
  Receipt Date: 20130723
  Transmission Date: 20140515
  Serious: Yes (Other)
  Sender: FDA-Public Use
  Company Number: IT-SPECTRUM PHARMACEUTICALS, INC.-13-F-US-00208

PATIENT
  Sex: 0

DRUGS (6)
  1. FLUOROURACIL [Suspect]
     Indication: GASTROOESOPHAGEAL CANCER
     Dosage: 400 MG/M2, BOLUS D 1-2
     Route: 042
  2. FLUOROURACIL [Suspect]
     Dosage: 600 MG/M2, 22 HR CONTINUOUS INFUSION D1-2
     Route: 042
  3. DOCETAXEL [Suspect]
     Indication: GASTROOESOPHAGEAL CANCER
     Dosage: 60-85 MG/M2, D1
     Route: 065
  4. CISPLATIN [Suspect]
     Indication: GASTROOESOPHAGEAL CANCER
     Dosage: 50-75 MG/M2, D1
     Route: 065
  5. FOLINIC ACID [Suspect]
     Indication: GASTROOESOPHAGEAL CANCER
     Dosage: 100 MG/M2, D 1-2
     Route: 065
  6. PEGFILGRASTIM [Concomitant]
     Indication: GASTROOESOPHAGEAL CANCER
     Dosage: 6 MG, D 3, EVERY 14 DAYS
     Route: 065

REACTIONS (8)
  - Febrile neutropenia [Unknown]
  - Hypokalaemia [Unknown]
  - Neutropenia [Unknown]
  - Thrombocytopenia [Unknown]
  - Anaemia [Unknown]
  - Diarrhoea [Unknown]
  - Stomatitis [Unknown]
  - Asthenia [Unknown]
